FAERS Safety Report 23076921 (Version 1)
Quarter: 2023Q4

REPORT INFORMATION
  Report Type: Report from Study
  Country: US (occurrence: US)
  Receive Date: 20231018
  Receipt Date: 20231018
  Transmission Date: 20240109
  Serious: Yes (Death)
  Sender: FDA-Public Use
  Company Number: US-ABBVIE-5452700

PATIENT
  Age: 73 Year
  Sex: Male

DRUGS (1)
  1. CREON [Suspect]
     Active Substance: PANCRELIPASE AMYLASE\PANCRELIPASE LIPASE\PANCRELIPASE PROTEASE
     Indication: Product used for unknown indication
     Dosage: FORM STRENGTH: 12000 UNIT?FREQUENCY TEXT: TAKE 2 CAP 3X DAY WITH MEAL 1 WITH SNACK
     Route: 048

REACTIONS (1)
  - Unevaluable event [Fatal]

NARRATIVE: CASE EVENT DATE: 20230501
